FAERS Safety Report 7579599-2 (Version None)
Quarter: 2011Q2

REPORT INFORMATION
  Report Type: 
  Country: None (occurrence: None)
  Receive Date: 20110629
  Receipt Date: 20110615
  Transmission Date: 20111010
  Serious: Yes (Other)
  Sender: FDA-Public Use
  Company Number: US-BAYER-2011-051776

PATIENT
  Age: 20 Year
  Sex: Female

DRUGS (1)
  1. MIRENA [Suspect]
     Indication: PRODUCT USED FOR UNKNOWN INDICATION
     Dosage: 20 ?G, UNK
     Route: 015
     Dates: start: 20101201

REACTIONS (3)
  - WITHDRAWAL BLEED [None]
  - CHLAMYDIA TEST POSITIVE [None]
  - VAGINAL HAEMORRHAGE [None]
